FAERS Safety Report 12477443 (Version 2)
Quarter: 2016Q3

REPORT INFORMATION
  Report Type: Spontaneous
  Country: JP (occurrence: JP)
  Receive Date: 20160617
  Receipt Date: 20160908
  Transmission Date: 20161109
  Serious: Yes (Other)
  Sender: FDA-Public Use
  Company Number: JP-GILEAD-2016-0217809

PATIENT
  Age: 78 Year
  Sex: Female
  Weight: 52 kg

DRUGS (5)
  1. IRBETAN [Concomitant]
     Active Substance: IRBESARTAN
  2. URSO [Concomitant]
     Active Substance: URSODIOL
  3. ALDACTONE [Concomitant]
     Active Substance: SPIRONOLACTONE
  4. AMLODIN [Concomitant]
     Active Substance: AMLODIPINE BESYLATE
  5. HARVONI [Suspect]
     Active Substance: LEDIPASVIR\SOFOSBUVIR
     Indication: HEPATITIS C
     Dosage: 1 DF, UNK
     Route: 048
     Dates: start: 20160308, end: 20160531

REACTIONS (2)
  - Influenza [Unknown]
  - Renal disorder [Recovered/Resolved]

NARRATIVE: CASE EVENT DATE: 20160322
